FAERS Safety Report 5377042-5 (Version None)
Quarter: 2007Q2

REPORT INFORMATION
  Report Type: 
  Country: None (occurrence: None)
  Receive Date: 20070628
  Receipt Date: 20070628
  Transmission Date: 20071010
  Serious: Yes (Other)
  Sender: FDA-Public Use
  Company Number: None

PATIENT
  Sex: Female
  Weight: 62.5964 kg

DRUGS (5)
  1. PREDNISONE 10 MG [Suspect]
     Indication: SINUSITIS
     Dosage: 6 FIRST DOSE, THEN DECREASING ONCE A DAY PO
     Route: 048
     Dates: start: 20070319, end: 20070325
  2. PREDNISONE 10 MG [Suspect]
     Indication: SINUSITIS
     Dosage: 6 FIRST DOSE, THEN DECREASING ONCE A DAY PO
     Route: 048
     Dates: start: 20070330
  3. PREDNISONE 10 MG [Suspect]
     Indication: SINUSITIS
     Dosage: 8 FIRST DOSE, 8 SECOND DOSE ONCE A DAY PO
     Route: 048
     Dates: start: 20070503, end: 20070517
  4. MOTRIN [Concomitant]
  5. TYLENOL W/ CODEINE [Concomitant]

REACTIONS (9)
  - BREAST TENDERNESS [None]
  - CONTUSION [None]
  - HEADACHE [None]
  - HYPOAESTHESIA [None]
  - INFLAMMATION [None]
  - MENORRHAGIA [None]
  - MUSCLE SPASMS [None]
  - MUSCULAR WEAKNESS [None]
  - PAIN IN EXTREMITY [None]
